FAERS Safety Report 6335240-8 (Version None)
Quarter: 2009Q3

REPORT INFORMATION
  Report Type: 
  Country: None (occurrence: None)
  Receive Date: 20090827
  Receipt Date: 20090818
  Transmission Date: 20100115
  Serious: Yes (Hospitalization)
  Sender: FDA-Public Use
  Company Number: DAV-AE-PTU-09-003

PATIENT
  Age: 57 Year
  Sex: Female

DRUGS (1)
  1. PROPYL-THIOURACIL [Suspect]
     Indication: BASEDOW'S DISEASE

REACTIONS (9)
  - ANAL ULCER [None]
  - ANTINEUTROPHIL CYTOPLASMIC ANTIBODY POSITIVE [None]
  - GASTRIC ULCER [None]
  - MICROCYTIC ANAEMIA [None]
  - MOUTH ULCERATION [None]
  - NECROSIS [None]
  - OESOPHAGEAL ULCER [None]
  - PYREXIA [None]
  - URTICARIA [None]
